FAERS Safety Report 9038379 (Version 1)
Quarter: 2013Q1

REPORT INFORMATION
  Report Type: Report from Study
  Country: US (occurrence: US)
  Receive Date: 20130130
  Receipt Date: 20130130
  Transmission Date: 20140127
  Serious: No
  Sender: FDA-Public Use
  Company Number: US-ABBOTT-12P-163-0947420-00

PATIENT
  Age: 62 None
  Sex: Male

DRUGS (1)
  1. HUMIRA 40 MG/0.8 ML PEN [Suspect]
     Indication: PRODUCT USED FOR UNKNOWN INDICATION
     Route: 058
     Dates: start: 20110606

REACTIONS (5)
  - Hypersensitivity [Unknown]
  - Allergic sinusitis [Unknown]
  - Respiratory tract congestion [Unknown]
  - Productive cough [Unknown]
  - Respiratory tract congestion [Unknown]
